FAERS Safety Report 9216909 (Version 2)
Quarter: 2013Q3

REPORT INFORMATION
  Report Type: Spontaneous
  Country: GR (occurrence: GR)
  Receive Date: 20130408
  Receipt Date: 20130924
  Transmission Date: 20140515
  Serious: Yes (Hospitalization)
  Sender: FDA-Public Use
  Company Number: GR-B.I. PHARMACEUTICALS,INC./RIDGEFIELD-2013-BI-09244GB

PATIENT
  Age: 70 Year
  Sex: Female

DRUGS (6)
  1. PRADAXA [Suspect]
     Indication: ATRIAL FIBRILLATION
     Dosage: 150 MG
     Route: 048
     Dates: start: 201209, end: 201212
  2. PRADAXA [Suspect]
     Dosage: 220 MG
     Route: 048
     Dates: start: 201212, end: 201306
  3. ANGORON [Suspect]
     Dosage: 150 MG
     Route: 042
     Dates: start: 20130312, end: 20130312
  4. SOLOSA [Concomitant]
     Indication: DIABETES MELLITUS
     Dosage: 1 MG
     Route: 048
  5. ZANIDIP [Concomitant]
     Indication: HYPERTENSION
     Route: 048
  6. APROVEL [Concomitant]
     Indication: HYPERTENSION
     Route: 048

REACTIONS (10)
  - Atrial fibrillation [Recovered/Resolved]
  - Atrial fibrillation [Recovered/Resolved]
  - Pulmonary oedema [Recovered/Resolved]
  - Atrial fibrillation [Recovered/Resolved]
  - Oedema peripheral [Recovered/Resolved]
  - Pain in extremity [Recovered/Resolved]
  - Haematocrit decreased [Recovered/Resolved]
  - Incorrect route of drug administration [Recovered/Resolved]
  - Drug interaction [Recovered/Resolved]
  - Off label use [Recovered/Resolved]
